FAERS Safety Report 6593158-X (Version None)
Quarter: 2010Q1

REPORT INFORMATION
  Report Type: 
  Country: None (occurrence: None)
  Receive Date: 20100222
  Receipt Date: 20100211
  Transmission Date: 20100710
  Serious: Yes (Hospitalization, Other)
  Sender: FDA-Public Use
  Company Number: PHEH2010US02495

PATIENT
  Age: 80 Year
  Sex: Female

DRUGS (1)
  1. RECLAST [Suspect]
     Dosage: 5MG, YEARLY
     Dates: start: 20091229

REACTIONS (3)
  - FALL [None]
  - HUMERUS FRACTURE [None]
  - MYALGIA [None]
